FAERS Safety Report 21305965 (Version 1)
Quarter: 2022Q3

REPORT INFORMATION
  Report Type: Report from Study
  Country: US (occurrence: US)
  Receive Date: 20220908
  Receipt Date: 20220908
  Transmission Date: 20221027
  Serious: Yes (Hospitalization, Other)
  Sender: FDA-Public Use
  Company Number: US-TEVA-2022-US-2070295

PATIENT

DRUGS (4)
  1. CIPROFLOXACIN [Suspect]
     Active Substance: CIPROFLOXACIN
     Indication: Device related infection
     Route: 048
  2. CIPROFLOXACIN [Suspect]
     Active Substance: CIPROFLOXACIN
     Indication: Pseudomonas infection
  3. IMIPENEM [Suspect]
     Active Substance: IMIPENEM
     Indication: Device related infection
     Route: 042
  4. IMIPENEM [Suspect]
     Active Substance: IMIPENEM
     Indication: Pseudomonas infection

REACTIONS (5)
  - Acinetobacter infection [Unknown]
  - Achromobacter infection [Unknown]
  - Staphylococcal infection [Unknown]
  - Candida infection [Unknown]
  - Drug ineffective [Unknown]
